FAERS Safety Report 24253265 (Version 11)
Quarter: 2024Q4

REPORT INFORMATION
  Report Type: Report from Study
  Country: CA (occurrence: CA)
  Receive Date: 20240827
  Receipt Date: 20241223
  Transmission Date: 20250115
  Serious: Yes (Hospitalization)
  Sender: CSL BEHRING
  Company Number: CA-BEH-2024177619

PATIENT
  Age: 62 Year
  Sex: Female
  Weight: 40 kg

DRUGS (13)
  1. HIZENTRA [Suspect]
     Active Substance: HUMAN IMMUNOGLOBULIN G
     Indication: Primary immunodeficiency syndrome
     Dosage: 6 G, QW
     Route: 065
     Dates: start: 20240402
  2. HIZENTRA [Suspect]
     Active Substance: HUMAN IMMUNOGLOBULIN G
     Dosage: 6 G, QW
     Route: 065
     Dates: start: 20240827
  3. HIZENTRA [Suspect]
     Active Substance: HUMAN IMMUNOGLOBULIN G
     Dosage: 6 G, QW
     Route: 065
  4. HIZENTRA [Suspect]
     Active Substance: HUMAN IMMUNOGLOBULIN G
     Dosage: 6 G, QW
     Route: 065
     Dates: start: 20241010
  5. HIZENTRA [Suspect]
     Active Substance: HUMAN IMMUNOGLOBULIN G
     Dosage: 6 G, QW
     Route: 065
     Dates: start: 20240402
  6. HIZENTRA [Suspect]
     Active Substance: HUMAN IMMUNOGLOBULIN G
     Dosage: 6 G, QW
     Route: 065
     Dates: start: 20241030
  7. ENTOCORT [Suspect]
     Active Substance: BUDESONIDE
     Dosage: 3 MG, BID
     Route: 065
  8. ENTOCORT [Suspect]
     Active Substance: BUDESONIDE
     Dosage: 3 MG, TID
     Route: 065
  9. CALCIUM [Concomitant]
     Active Substance: CALCIUM
  10. LOMOTIL [Concomitant]
     Active Substance: ATROPINE SULFATE\DIPHENOXYLATE HYDROCHLORIDE
     Dosage: 2 DF, EVERY 2 TO 3 HOURS PRN
     Route: 048
  11. LOMOTIL [Concomitant]
     Active Substance: ATROPINE SULFATE\DIPHENOXYLATE HYDROCHLORIDE
     Dosage: 2.5 MG, PRN
     Route: 048
  12. LOMOTIL [Concomitant]
     Active Substance: ATROPINE SULFATE\DIPHENOXYLATE HYDROCHLORIDE
     Dosage: 2.5 MG, PRN
     Dates: start: 20241029
  13. BISMUTH [Concomitant]
     Active Substance: BISMUTH
     Dosage: 265 MG, QID
     Dates: start: 20240825

REACTIONS (41)
  - Pyrexia [Unknown]
  - Dyspnoea [Unknown]
  - Colitis microscopic [Unknown]
  - Salivary hyposecretion [Unknown]
  - Thirst [Unknown]
  - Dehydration [Unknown]
  - Diarrhoea [Unknown]
  - Frequent bowel movements [Unknown]
  - Infusion site discharge [Unknown]
  - Infusion site oedema [Unknown]
  - Infusion site erythema [Unknown]
  - Abdominal distension [Unknown]
  - Infusion site oedema [Unknown]
  - Infusion site erythema [Unknown]
  - Frequent bowel movements [Unknown]
  - Diarrhoea [Unknown]
  - Headache [Unknown]
  - Fatigue [Unknown]
  - Hot flush [Unknown]
  - Chills [Unknown]
  - Abnormal faeces [Unknown]
  - Infusion site oedema [Unknown]
  - Infusion site erythema [Unknown]
  - Infusion site oedema [Unknown]
  - Infusion site oedema [Unknown]
  - Fatigue [Unknown]
  - Haemoglobin decreased [Unknown]
  - Infusion site oedema [Unknown]
  - Infusion site erythema [Unknown]
  - Dyspnoea [Unknown]
  - Infusion site oedema [Unknown]
  - Infusion site erythema [Unknown]
  - Abdominal distension [Unknown]
  - Infusion site oedema [Unknown]
  - Infusion site erythema [Unknown]
  - Infusion site oedema [Unknown]
  - Therapy interrupted [Unknown]
  - Nausea [Unknown]
  - Mucous stools [Unknown]
  - Abdominal pain [Unknown]
  - Infusion site oedema [Unknown]

NARRATIVE: CASE EVENT DATE: 20240501
